FAERS Safety Report 5514764-7 (Version None)
Quarter: 2007Q4

REPORT INFORMATION
  Report Type: 
  Country: None (occurrence: None)
  Receive Date: 20071113
  Receipt Date: 20071106
  Transmission Date: 20080405
  Serious: Yes (Other)
  Sender: FDA-Public Use
  Company Number: GB-SANOFI-SYNTHELABO-A01200712589

PATIENT
  Age: 67 Year
  Sex: Male

DRUGS (4)
  1. ANTI-EMETICS [Concomitant]
     Dosage: UNK
  2. DEXAMETHASONE [Concomitant]
     Dosage: UNK
  3. CAPECITABINE [Concomitant]
     Indication: COLORECTAL CANCER
     Dosage: UNK
  4. ELOXATIN [Suspect]
     Indication: COLORECTAL CANCER
     Dosage: UNK
     Route: 042

REACTIONS (2)
  - DIPLOPIA [None]
  - HEMIPARESIS [None]
